FAERS Safety Report 4391628-6 (Version None)
Quarter: 2004Q3

REPORT INFORMATION
  Report Type: 
  Country: None (occurrence: None)
  Receive Date: 20040701
  Receipt Date: 20040616
  Transmission Date: 20050211
  Serious: Yes (Other)
  Sender: FDA-Public Use
  Company Number: USA040670213

PATIENT
  Age: 74 Year
  Sex: Male
  Weight: 130 kg

DRUGS (11)
  1. XIGRIS [Suspect]
     Indication: SEPSIS
     Dosage: 24 UG/KG/HR
     Dates: start: 20040613, end: 20040616
  2. DOPAMINE HCL [Concomitant]
  3. NEOSYNEPHRINE (PHENYLEPHRINE HYDROCHLORIDE) [Concomitant]
  4. DOBUTAMINE [Concomitant]
  5. LEVOPHED [Concomitant]
  6. INSULIN [Concomitant]
  7. CALCIUM [Concomitant]
  8. MAGNESIUM (MAGNESIUM ASPARTATE) [Concomitant]
  9. PREVACID [Concomitant]
  10. LORAZEPAM [Concomitant]
  11. LEVAQUIN [Concomitant]

REACTIONS (2)
  - ACTIVATED PARTIAL THROMBOPLASTIN TIME PROLONGED [None]
  - PLATELET COUNT DECREASED [None]
